FAERS Safety Report 23038804 (Version 1)
Quarter: 2023Q4

REPORT INFORMATION
  Report Type: Spontaneous
  Country: US (occurrence: None)
  Receive Date: 20231006
  Receipt Date: 20231006
  Transmission Date: 20240109
  Serious: Yes (Hospitalization)
  Sender: FDA-Public Use
  Company Number: None

PATIENT
  Age: 46 Year
  Sex: Female
  Weight: 79.4 kg

DRUGS (4)
  1. FLUOROURACIL [Suspect]
     Active Substance: FLUOROURACIL
     Dates: end: 20230628
  2. CAMPTOSAR [Suspect]
     Active Substance: IRINOTECAN HYDROCHLORIDE
     Dates: end: 20230628
  3. LEUCOVORIN CALCIUM [Suspect]
     Active Substance: LEUCOVORIN CALCIUM
     Dates: end: 20230628
  4. ELOXATIN [Suspect]
     Active Substance: OXALIPLATIN
     Dates: end: 20230628

REACTIONS (4)
  - Febrile neutropenia [None]
  - Back pain [None]
  - Urinary tract infection [None]
  - Asthenia [None]

NARRATIVE: CASE EVENT DATE: 20230708
